FAERS Safety Report 4297157-2 (Version None)
Quarter: 2004Q1

REPORT INFORMATION
  Report Type: 
  Country: None (occurrence: None)
  Receive Date: 20040218
  Receipt Date: 20040213
  Transmission Date: 20041129
  Serious: Yes (Death, Hospitalization)
  Sender: FDA-Public Use
  Company Number: 200410348DE

PATIENT
  Age: 61 Year
  Sex: Female
  Weight: 70 kg

DRUGS (1)
  1. DOCETAXEL [Suspect]
     Indication: BREAST CANCER
     Dates: start: 20040204, end: 20040204

REACTIONS (5)
  - CIRCULATORY COLLAPSE [None]
  - DIARRHOEA [None]
  - LEUKOPENIA [None]
  - PYREXIA [None]
  - SEPSIS [None]
